FAERS Safety Report 5449949-1 (Version None)
Quarter: 2007Q3

REPORT INFORMATION
  Report Type: 
  Country: None (occurrence: None)
  Receive Date: 20070803
  Receipt Date: 20070611
  Transmission Date: 20080115
  Serious: No
  Sender: FDA-Public Use
  Company Number: 200710475BWH

PATIENT
  Age: 84 Year
  Sex: Male

DRUGS (3)
  1. NEXAVAR [Suspect]
     Indication: METASTASES TO LYMPH NODES
     Dosage: 400 MG, BID, ORAL
     Route: 048
     Dates: start: 20070131
  2. NEXAVAR [Suspect]
     Indication: METASTATIC RENAL CELL CARCINOMA
     Dosage: 400 MG, BID, ORAL
     Route: 048
     Dates: start: 20070131
  3. MOTRIN [Concomitant]

REACTIONS (7)
  - CHILLS [None]
  - DECREASED APPETITE [None]
  - NASOPHARYNGITIS [None]
  - PAIN [None]
  - PYREXIA [None]
  - RASH [None]
  - SPUTUM PURULENT [None]
